FAERS Safety Report 19295509 (Version 2)
Quarter: 2021Q3

REPORT INFORMATION
  Report Type: Spontaneous
  Country: BR (occurrence: BR)
  Receive Date: 20210524
  Receipt Date: 20210705
  Transmission Date: 20211014
  Serious: Yes (Death, Hospitalization, Other)
  Sender: FDA-Public Use
  Company Number: BR-GLAXOSMITHKLINE-BR2021AMR107088

PATIENT
  Sex: Male

DRUGS (2)
  1. ALENIA (BUDESONIDA + FORMOTEROL) [Suspect]
     Active Substance: BUDESONIDE\FORMOTEROL FUMARATE
     Indication: PRODUCT USED FOR UNKNOWN INDICATION
     Dosage: UNK
  2. TRELEGY ELLIPTA [Suspect]
     Active Substance: FLUTICASONE FUROATE\UMECLIDINIUM BROMIDE\VILANTEROL TRIFENATATE
     Indication: PRODUCT USED FOR UNKNOWN INDICATION
     Dosage: UNK 100/ 62,5/ 25 MCG X 30 DOSES
     Dates: start: 202002, end: 202101

REACTIONS (10)
  - Hospitalisation [Unknown]
  - Arrhythmia [Unknown]
  - Condition aggravated [Unknown]
  - Respiratory failure [Unknown]
  - Fluid retention [Unknown]
  - Discomfort [Unknown]
  - Anxiety [Unknown]
  - Cardiac arrest [Fatal]
  - Cardiac disorder [Unknown]
  - Pulmonary oedema [Unknown]
